FAERS Safety Report 15799945 (Version 1)
Quarter: 2019Q1

REPORT INFORMATION
  Report Type: Spontaneous
  Country: US (occurrence: US)
  Receive Date: 20190108
  Receipt Date: 20190108
  Transmission Date: 20190417
  Serious: Yes (Death, Hospitalization)
  Sender: FDA-Public Use
  Company Number: US-BAYER-2019-006209

PATIENT
  Age: 48 Year
  Sex: Female

DRUGS (5)
  1. ALCOHOL. [Suspect]
     Active Substance: ALCOHOL
  2. WARFARIN [Suspect]
     Active Substance: WARFARIN
  3. QUETIAPINE. [Suspect]
     Active Substance: QUETIAPINE
  4. ACETYLSALICYLIC ACID (} 100 MG) [Suspect]
     Active Substance: ASPIRIN
     Route: 048
  5. DILTIAZEM. [Suspect]
     Active Substance: DILTIAZEM

REACTIONS (2)
  - Completed suicide [Fatal]
  - Toxicity to various agents [Fatal]
